FAERS Safety Report 5207638-2 (Version None)
Quarter: 2007Q1

REPORT INFORMATION
  Report Type: 
  Country: None (occurrence: None)
  Receive Date: 20070112
  Receipt Date: 20070102
  Transmission Date: 20070707
  Serious: Yes (Death, Hospitalization, Other)
  Sender: FDA-Public Use
  Company Number: US-PFIZER INC-2006128897

PATIENT
  Sex: Male
  Weight: 83.5 kg

DRUGS (10)
  1. CHANTIX [Suspect]
     Indication: SMOKER
     Route: 048
     Dates: start: 20060919, end: 20061001
  2. CHANTIX [Suspect]
     Indication: CHRONIC OBSTRUCTIVE PULMONARY DISEASE
  3. WARFARIN SODIUM [Suspect]
  4. OXYGEN [Concomitant]
     Route: 045
  5. PRAVACHOL [Concomitant]
  6. ACIPHEX [Concomitant]
     Route: 048
  7. PAXIL CR [Concomitant]
  8. FOSINOPRIL SODIUM [Concomitant]
     Route: 048
  9. ALBUTEROL [Concomitant]
  10. ATROVENT [Concomitant]

REACTIONS (8)
  - ANAEMIA [None]
  - CHRONIC OBSTRUCTIVE PULMONARY DISEASE [None]
  - COR PULMONALE [None]
  - EPISTAXIS [None]
  - HYPOTENSION [None]
  - NASAL DRYNESS [None]
  - PULMONARY FIBROSIS [None]
  - RETROPERITONEAL HAEMORRHAGE [None]
